FAERS Safety Report 8460382-0 (Version None)
Quarter: 2012Q2

REPORT INFORMATION
  Report Type: 
  Country: None (occurrence: None)
  Receive Date: 20120323
  Receipt Date: 20110822
  Transmission Date: 20120825
  Serious: Yes (Other)
  Sender: FDA-Public Use
  Company Number: 163-21880-11063351

PATIENT
  Age: 72 Year
  Sex: Male
  Weight: 75.7507 kg

DRUGS (6)
  1. VELCADE [Concomitant]
  2. DEXAMETHASONE [Concomitant]
  3. ZOMETA [Concomitant]
  4. REVLIMID [Suspect]
     Indication: MULTIPLE MYELOMA
     Dosage: 25 MG, DAYS 1-14, PO, 15 MG, DAYS 1-14, PO
     Route: 048
     Dates: start: 20110531
  5. REVLIMID [Suspect]
     Indication: MULTIPLE MYELOMA
     Dosage: 25 MG, DAYS 1-14, PO, 15 MG, DAYS 1-14, PO
     Route: 048
     Dates: start: 20110601, end: 20110705
  6. PROCRIT [Concomitant]

REACTIONS (1)
  - PYREXIA [None]
